FAERS Safety Report 10401491 (Version 1)
Quarter: 2014Q3

REPORT INFORMATION
  Report Type: Spontaneous
  Country: FI (occurrence: None)
  Receive Date: 20140820
  Receipt Date: 20140820
  Transmission Date: 20150326
  Serious: Yes (Death)
  Sender: FDA-Public Use
  Company Number: IMP_07835_2014

PATIENT
  Age: 80 Year
  Sex: Female

DRUGS (2)
  1. DIGOXIN (DIGOXIN) [Suspect]
     Active Substance: DIGOXIN
     Indication: POISONING
     Dosage: DF
     Dates: start: 20040622, end: 20040622
  2. DIXYRAZINE [Suspect]
     Active Substance: DIXYRAZINE
     Indication: POISONING
     Dosage: DF
     Dates: start: 20040622, end: 20040622

REACTIONS (5)
  - Cardioactive drug level increased [None]
  - Wrong drug administered [None]
  - Victim of crime [None]
  - Victim of homicide [None]
  - Toxicity to various agents [None]

NARRATIVE: CASE EVENT DATE: 20040622
